FAERS Safety Report 4809061-9 (Version None)
Quarter: 2005Q4

REPORT INFORMATION
  Report Type: 
  Country: None (occurrence: None)
  Receive Date: 20051021
  Receipt Date: 20030507
  Transmission Date: 20060501
  Serious: Yes (Hospitalization)
  Sender: FDA-Public Use
  Company Number: DE_030511233

PATIENT
  Age: 74 Year
  Sex: Female

DRUGS (2)
  1. ZYPREXA [Suspect]
     Indication: DEPRESSION
     Dosage: 5 MG/DAY
     Dates: start: 20030424, end: 20030428
  2. ZYPREXA [Suspect]
     Indication: PSYCHOTIC DISORDER
     Dosage: 5 MG/DAY
     Dates: start: 20030424, end: 20030428

REACTIONS (1)
  - PANCYTOPENIA [None]
